FAERS Safety Report 8063493-7 (Version None)
Quarter: 2012Q1

REPORT INFORMATION
  Report Type: 
  Country: None (occurrence: None)
  Receive Date: 20120123
  Receipt Date: 20120118
  Transmission Date: 20120608
  Serious: Yes (Other)
  Sender: FDA-Public Use
  Company Number: PHHY2010CA76525

PATIENT
  Sex: Female

DRUGS (1)
  1. ZOLEDRONOC ACID [Suspect]
     Indication: OSTEOPOROSIS
     Dosage: 5 MG, UNK
     Route: 042
     Dates: start: 20101029

REACTIONS (5)
  - INFLUENZA LIKE ILLNESS [None]
  - BONE LOSS [None]
  - DYSGEUSIA [None]
  - LOOSE TOOTH [None]
  - BONE DENSITY DECREASED [None]
